FAERS Safety Report 4480615-5 (Version None)
Quarter: 2004Q4

REPORT INFORMATION
  Report Type: 
  Country: None (occurrence: None)
  Receive Date: 20041019
  Receipt Date: 20041006
  Transmission Date: 20050328
  Serious: Yes (Death, Other)
  Sender: FDA-Public Use
  Company Number: 2004075902

PATIENT
  Age: 50 Year
  Sex: Male

DRUGS (2)
  1. VIAGRA [Suspect]
     Dosage: (100 MG, AS NECESSARY), ORAL
     Route: 048
  2. TADALAFIL (TADALAFIL) [Concomitant]

REACTIONS (7)
  - AGGRESSION [None]
  - ALCOHOLISM [None]
  - EYELID PTOSIS [None]
  - GASTRIC CANCER [None]
  - IRRITABILITY [None]
  - NEOPLASM PROGRESSION [None]
  - PANCREATIC CARCINOMA [None]
